FAERS Safety Report 5348518-1 (Version None)
Quarter: 2007Q2

REPORT INFORMATION
  Report Type: 
  Country: None (occurrence: None)
  Receive Date: 20070606
  Receipt Date: 20070525
  Transmission Date: 20071010
  Serious: Yes (Other)
  Sender: FDA-Public Use
  Company Number: GB-PFIZER INC-2007043526

PATIENT
  Sex: Male

DRUGS (3)
  1. EPANUTIN INJECTABLE [Suspect]
     Indication: EPILEPSY
     Route: 042
  2. HYPNOTICS AND SEDATIVES [Concomitant]
  3. CARBAMAZEPINE [Concomitant]

REACTIONS (1)
  - ANTICONVULSANT DRUG LEVEL DECREASED [None]
